FAERS Safety Report 5591302-4 (Version None)
Quarter: 2008Q1

REPORT INFORMATION
  Report Type: 
  Country: None (occurrence: None)
  Receive Date: 20080115
  Receipt Date: 20080107
  Transmission Date: 20080703
  Serious: Yes (Other)
  Sender: FDA-Public Use
  Company Number: BE-AVENTIS-200810307GDDC

PATIENT
  Age: 69 Year
  Sex: Female

DRUGS (5)
  1. KETEK [Suspect]
     Indication: BRONCHITIS
     Route: 048
     Dates: start: 20071025, end: 20071105
  2. MEDROL [Concomitant]
     Dosage: DOSE: UNK
  3. ASPIRIN [Concomitant]
     Dosage: DOSE: UNK
  4. ACTONEL [Concomitant]
     Dosage: DOSE: UNK
  5. ESTRADIOL VALERATE W/CYPROTERONE [Concomitant]
     Dosage: DOSE: UNK

REACTIONS (1)
  - DERMATOSIS [None]
